FAERS Safety Report 25368985 (Version 1)
Quarter: 2025Q2

REPORT INFORMATION
  Report Type: Spontaneous
  Country: BR (occurrence: None)
  Receive Date: 20250528
  Receipt Date: 20250528
  Transmission Date: 20250716
  Serious: Yes (Death, Hospitalization)
  Sender: INCYTE
  Company Number: BR-002147023-NVSC2025BR082795

PATIENT

DRUGS (1)
  1. RUXOLITINIB [Suspect]
     Active Substance: RUXOLITINIB
     Indication: Acute myeloid leukaemia
     Dosage: 2 DOSAGE FORM, QD (WITH 60 TABLETS)
     Route: 065

REACTIONS (7)
  - Renal injury [Fatal]
  - Product use in unapproved indication [Unknown]
  - Sepsis [Fatal]
  - Septic shock [Fatal]
  - Pneumonia viral [Fatal]
  - Malaise [Unknown]
  - Acute myeloid leukaemia [Fatal]
